FAERS Safety Report 9692201 (Version 1)
Quarter: 2013Q4

REPORT INFORMATION
  Report Type: Report from Study
  Country: IT (occurrence: IT)
  Receive Date: 20131118
  Receipt Date: 20131118
  Transmission Date: 20140711
  Serious: Yes (Hospitalization, Other)
  Sender: FDA-Public Use
  Company Number: IT-INDICUS PHARMA-000127

PATIENT
  Sex: 0

DRUGS (1)
  1. METFORMIN HYDROCHLORIDE [Suspect]
     Indication: DIABETES MELLITUS

REACTIONS (2)
  - Toxicity to various agents [Unknown]
  - Lactic acidosis [Unknown]
